FAERS Safety Report 13553304 (Version 1)
Quarter: 2017Q2

REPORT INFORMATION
  Report Type: Spontaneous
  Country: US (occurrence: US)
  Receive Date: 20170516
  Receipt Date: 20170516
  Transmission Date: 20170830
  Serious: Yes (Life-Threatening, Hospitalization, Disabling, Other)
  Sender: FDA-Public Use
  Company Number: None

PATIENT
  Age: 82 Year
  Sex: Male
  Weight: 99.9 kg

DRUGS (4)
  1. FERROUS SULFATE. [Concomitant]
     Active Substance: FERROUS SULFATE
  2. ELIQUIS [Suspect]
     Active Substance: APIXABAN
     Indication: ATRIAL FIBRILLATION
     Dosage: ?          QUANTITY:60 TABLET(S);?
     Route: 048
     Dates: start: 20170414, end: 20170514
  3. MULTI-VIT [Concomitant]
     Active Substance: VITAMINS
  4. MAGNESIUM HS [Concomitant]

REACTIONS (11)
  - Haemoglobin decreased [None]
  - Cold sweat [None]
  - Abdominal pain [None]
  - Asthenia [None]
  - Gait disturbance [None]
  - Melaena [None]
  - Gastrointestinal haemorrhage [None]
  - Pallor [None]
  - Dizziness [None]
  - Urinary incontinence [None]
  - Dyspnoea [None]

NARRATIVE: CASE EVENT DATE: 20170514
